FAERS Safety Report 14441533 (Version 3)
Quarter: 2018Q3

REPORT INFORMATION
  Report Type: Spontaneous
  Country: US (occurrence: US)
  Receive Date: 20180125
  Receipt Date: 20180920
  Transmission Date: 20181010
  Serious: Yes (Hospitalization, Other)
  Sender: FDA-Public Use
  Company Number: US-DSJP-DSU-2017-139127

PATIENT

DRUGS (1)
  1. BENICAR [Suspect]
     Active Substance: OLMESARTAN MEDOXOMIL
     Indication: PRODUCT USED FOR UNKNOWN INDICATION
     Dosage: 40 MG, QD
     Route: 048
     Dates: start: 20090101, end: 20170701

REACTIONS (5)
  - Barrett^s oesophagus [Unknown]
  - Sprue-like enteropathy [Recovering/Resolving]
  - End stage renal disease [Unknown]
  - Erosive oesophagitis [Unknown]
  - Oesophagitis ulcerative [Unknown]

NARRATIVE: CASE EVENT DATE: 20100101
